FAERS Safety Report 22066458 (Version 3)
Quarter: 2023Q1

REPORT INFORMATION
  Report Type: Spontaneous
  Country: US (occurrence: US)
  Receive Date: 20230306
  Receipt Date: 20230330
  Transmission Date: 20230417
  Serious: No
  Sender: FDA-Public Use
  Company Number: US-PFIZER INC-202300087846

PATIENT
  Age: 55 Year
  Sex: Female
  Weight: 106.59 kg

DRUGS (1)
  1. NICOTROL [Suspect]
     Active Substance: NICOTINE
     Indication: Smoking cessation therapy
     Dosage: ONE PUFF UP TO SIX TIMES A DAY
     Dates: start: 20201229

REACTIONS (3)
  - Stomatitis [Recovered/Resolved]
  - Nasal disorder [Recovered/Resolved]
  - Oral pain [Not Recovered/Not Resolved]
